FAERS Safety Report 18106722 (Version 1)
Quarter: 2020Q3

REPORT INFORMATION
  Report Type: Spontaneous
  Country: AL (occurrence: AL)
  Receive Date: 20200803
  Receipt Date: 20200803
  Transmission Date: 20201103
  Serious: Yes (Hospitalization, Other)
  Sender: FDA-Public Use
  Company Number: AL-GLAXOSMITHKLINE-AL2020GSK148883

PATIENT
  Age: 66 Year
  Sex: Male

DRUGS (1)
  1. LAMIVUDINE. [Suspect]
     Active Substance: LAMIVUDINE
     Indication: CHRONIC HEPATITIS
     Dosage: UNK

REACTIONS (5)
  - Haemorrhage [Recovered/Resolved]
  - Suicidal ideation [Unknown]
  - Intentional self-injury [Unknown]
  - Suicide attempt [Unknown]
  - Tendon injury [Recovered/Resolved]
